FAERS Safety Report 17850966 (Version 2)
Quarter: 2020Q2

REPORT INFORMATION
  Report Type: Spontaneous
  Country: CA (occurrence: CA)
  Receive Date: 20200602
  Receipt Date: 20200604
  Transmission Date: 20200714
  Serious: Yes (Other)
  Sender: FDA-Public Use
  Company Number: CA-PFIZER INC-2020214618

PATIENT
  Sex: Female

DRUGS (2)
  1. METHOTREXATE PHARMASCIENCE [Suspect]
     Active Substance: METHOTREXATE
     Indication: ARTHRITIS
     Dosage: 25 MG, WEEKLY
     Route: 058
  2. METHOTREXATE PHARMASCIENCE [Suspect]
     Active Substance: METHOTREXATE
     Route: 048

REACTIONS (1)
  - Neuropathy peripheral [Unknown]
